FAERS Safety Report 6105197-3 (Version None)
Quarter: 2009Q1

REPORT INFORMATION
  Report Type: 
  Country: None (occurrence: None)
  Receive Date: 20090304
  Receipt Date: 20090220
  Transmission Date: 20090719
  Serious: Yes (Hospitalization, Other)
  Sender: FDA-Public Use
  Company Number: 2009S1002865

PATIENT
  Age: 48 Year
  Sex: Male
  Weight: 45.3597 kg

DRUGS (1)
  1. CLOZAPINE [Suspect]
     Indication: SCHIZOAFFECTIVE DISORDER
     Dosage: 400 MG AT BEDTIME; ORAL
     Route: 048
     Dates: end: 20090114

REACTIONS (6)
  - ASTHENIA [None]
  - FALL [None]
  - GASTRIC ULCER [None]
  - GRANULOCYTOPENIA [None]
  - LEUKOPENIA [None]
  - WEIGHT DECREASED [None]
